FAERS Safety Report 23449309 (Version 1)
Quarter: 2024Q1

REPORT INFORMATION
  Report Type: Report from Study
  Country: US (occurrence: US)
  Receive Date: 20240129
  Receipt Date: 20240129
  Transmission Date: 20240410
  Serious: Yes (Other)
  Sender: FDA-Public Use
  Company Number: US-MTPC-MTDA2024-0001216

PATIENT
  Sex: Female

DRUGS (3)
  1. RADICAVA ORS [Suspect]
     Active Substance: EDARAVONE
     Indication: Product used for unknown indication
     Dosage: UNK, QD FOR 14 DAYS ON, THEN 14 DAYS OFF
     Route: 048
  2. RADICAVA ORS [Suspect]
     Active Substance: EDARAVONE
     Indication: Product used for unknown indication
     Dosage: UNK, QD FOR 14 DAYS ON, THEN 14 DAYS OFF
     Route: 048
  3. RELYVRIO [Suspect]
     Active Substance: SODIUM PHENYLBUTYRATE\TAURURSODIOL
     Indication: Product used for unknown indication
     Dosage: UNK, QD FOR 3 WEEKS THEN 2 TIMES A DAY THEREAFTER
     Route: 048

REACTIONS (4)
  - Drug hypersensitivity [Unknown]
  - Dyskinesia [Unknown]
  - Loss of consciousness [Unknown]
  - Malaise [Unknown]
